FAERS Safety Report 19656602 (Version 1)
Quarter: 2021Q3

REPORT INFORMATION
  Report Type: Spontaneous
  Country: CN (occurrence: CN)
  Receive Date: 20210804
  Receipt Date: 20210804
  Transmission Date: 20211014
  Serious: Yes (Other)
  Sender: FDA-Public Use
  Company Number: CN-UCBSA-2020046699

PATIENT
  Age: 39 Year
  Sex: Female
  Weight: 57.5 kg

DRUGS (2)
  1. FEN LE [ARIPIPRAZOLE] [Concomitant]
     Indication: PRODUCT USED FOR UNKNOWN INDICATION
     Dosage: 2 DOSAGE FORM, ONCE DAILY (QD)
  2. CIMZIA [Suspect]
     Active Substance: CERTOLIZUMAB PEGOL
     Indication: RHEUMATOID ARTHRITIS
     Dosage: 400 MILLIGRAM, UNK
     Dates: start: 20201015

REACTIONS (3)
  - Premature delivery [Unknown]
  - Maternal exposure during pregnancy [Unknown]
  - Uterine scar [Unknown]

NARRATIVE: CASE EVENT DATE: 20201015
